FAERS Safety Report 12197719 (Version 2)
Quarter: 2016Q2

REPORT INFORMATION
  Report Type: Spontaneous
  Country: US (occurrence: US)
  Receive Date: 20160322
  Receipt Date: 20160406
  Transmission Date: 20160815
  Serious: Yes (Hospitalization)
  Sender: FDA-Public Use
  Company Number: US-BEH-2016060206

PATIENT
  Age: 74 Year
  Sex: Female
  Weight: 65 kg

DRUGS (20)
  1. SYNTHROID [Concomitant]
     Active Substance: LEVOTHYROXINE SODIUM
  2. BIOTIN [Concomitant]
     Active Substance: BIOTIN
  3. HIZENTRA [Suspect]
     Active Substance: HUMAN IMMUNOGLOBULIN G
     Indication: IMMUNODEFICIENCY COMMON VARIABLE
     Dosage: STARTED IN 2004
     Route: 058
  4. CIPRO [Concomitant]
     Active Substance: CIPROFLOXACIN HYDROCHLORIDE
  5. ACETAMINOPHEN. [Concomitant]
     Active Substance: ACETAMINOPHEN
  6. MAGNESIUM [Concomitant]
     Active Substance: MAGNESIUM
  7. ZYRTEC [Concomitant]
     Active Substance: CETIRIZINE HYDROCHLORIDE
  8. OMEPRAZOLE. [Concomitant]
     Active Substance: OMEPRAZOLE
  9. HIZENTRA [Suspect]
     Active Substance: HUMAN IMMUNOGLOBULIN G
     Dosage: STRENGTH OF DOSAGE FORM: 4GM 20ML VIALS
     Route: 058
  10. KEFLEX [Concomitant]
     Active Substance: CEPHALEXIN
  11. MULTIVITAMINS [Concomitant]
     Active Substance: VITAMINS
  12. PULMOZYME [Concomitant]
     Active Substance: DORNASE ALFA
  13. LMX [Concomitant]
     Active Substance: LIDOCAINE
  14. DIPHENHYDRAMINE. [Concomitant]
     Active Substance: DIPHENHYDRAMINE
  15. VITAMIN B12 [Concomitant]
     Active Substance: CYANOCOBALAMIN
  16. CALCIUM [Concomitant]
     Active Substance: CALCIUM
  17. DOXYCYCLINE. [Concomitant]
     Active Substance: DOXYCYCLINE
  18. EPIPEN [Concomitant]
     Active Substance: EPINEPHRINE
  19. SYMBICORT [Concomitant]
     Active Substance: BUDESONIDE\FORMOTEROL FUMARATE DIHYDRATE
  20. VITAMIN D [Concomitant]
     Active Substance: CHOLECALCIFEROL

REACTIONS (3)
  - Treatment failure [Unknown]
  - Dyspnoea [Recovering/Resolving]
  - Sinusitis [Recovering/Resolving]

NARRATIVE: CASE EVENT DATE: 201601
